FAERS Safety Report 11736740 (Version 1)
Quarter: 2015Q4

REPORT INFORMATION
  Report Type: Spontaneous
  Country: US (occurrence: US)
  Receive Date: 20151113
  Receipt Date: 20151113
  Transmission Date: 20160304
  Serious: No
  Sender: FDA-Public Use
  Company Number: US-JNJFOC-20151002464

PATIENT
  Age: 79 Year
  Sex: Female
  Weight: 50.8 kg

DRUGS (7)
  1. THOMAPYRIN N [Concomitant]
     Active Substance: ASPIRIN
     Route: 065
  2. IMODIUM MULTI-SYMPTOM RELIEF [Suspect]
     Active Substance: DIMETHICONE\LOPERAMIDE HYDROCHLORIDE
     Indication: GASTROINTESTINAL DISORDER
     Route: 048
  3. DIGOXIN. [Concomitant]
     Active Substance: DIGOXIN
     Indication: ARRHYTHMIA
     Route: 065
  4. IMODIUM MULTI-SYMPTOM RELIEF [Suspect]
     Active Substance: DIMETHICONE\LOPERAMIDE HYDROCHLORIDE
     Indication: GASTROINTESTINAL DISORDER
     Route: 048
  5. VENTOLIN [Concomitant]
     Active Substance: ALBUTEROL SULFATE
     Indication: PULMONARY CONGESTION
     Route: 065
  6. TAZTIA XT [Concomitant]
     Active Substance: DILTIAZEM HYDROCHLORIDE
     Indication: ARRHYTHMIA
     Route: 065
  7. ASMANEX [Concomitant]
     Active Substance: MOMETASONE FUROATE
     Indication: PULMONARY CONGESTION
     Route: 065

REACTIONS (6)
  - Dysphagia [Unknown]
  - Product shape issue [Unknown]
  - Product size issue [Unknown]
  - Throat irritation [Unknown]
  - Wrong technique in product usage process [Unknown]
  - Incorrect dose administered [Unknown]
